FAERS Safety Report 10267184 (Version 1)
Quarter: 2014Q2

REPORT INFORMATION
  Report Type: Spontaneous
  Country: US (occurrence: US)
  Receive Date: 20140630
  Receipt Date: 20140630
  Transmission Date: 20141212
  Serious: No
  Sender: FDA-Public Use
  Company Number: US-JNJFOC-20140612039

PATIENT
  Age: 17 Year
  Sex: Male
  Weight: 92.53 kg

DRUGS (2)
  1. INVEGA [Suspect]
     Indication: SCHIZOPHRENIA
     Route: 048
  2. TRAZODONE [Concomitant]
     Indication: SCHIZOPHRENIA
     Route: 048
     Dates: start: 20140616

REACTIONS (2)
  - Heart rate increased [Recovering/Resolving]
  - Headache [Not Recovered/Not Resolved]
